FAERS Safety Report 5761410-3 (Version None)
Quarter: 2008Q2

REPORT INFORMATION
  Report Type: 
  Country: None (occurrence: None)
  Receive Date: 20080606
  Receipt Date: 20080528
  Transmission Date: 20081010
  Serious: Yes (Death, Hospitalization, Other)
  Sender: FDA-Public Use
  Company Number: TR-ABBOTT-08P-161-0451057-00

PATIENT
  Age: 80 Year
  Sex: Female
  Weight: 70 kg

DRUGS (1)
  1. TARKA [Suspect]
     Indication: HYPERTENSION
     Dosage: 4-5 TABLETS
     Route: 048
     Dates: start: 20070101, end: 20080430

REACTIONS (3)
  - HYPOTENSION [None]
  - MEDICATION ERROR [None]
  - MYOCARDIAL INFARCTION [None]
